FAERS Safety Report 9370102 (Version 1)
Quarter: 2013Q2

REPORT INFORMATION
  Report Type: Spontaneous
  Country: US (occurrence: US)
  Receive Date: 20130626
  Receipt Date: 20130626
  Transmission Date: 20140414
  Serious: No
  Sender: FDA-Public Use
  Company Number: US-ASTELLAS-2013US004451

PATIENT
  Age: 50 Year
  Sex: Female

DRUGS (3)
  1. VESICARE [Suspect]
     Indication: STRESS URINARY INCONTINENCE
     Dosage: 10 MG, UID/QD
     Route: 048
     Dates: start: 20130424
  2. VESICARE [Suspect]
     Indication: POLLAKIURIA
     Dosage: 5 MG, UNKNOWN/D
     Route: 048
  3. VESICARE [Suspect]
     Indication: HYPERTONIC BLADDER

REACTIONS (3)
  - Off label use [Unknown]
  - Wrong technique in drug usage process [Unknown]
  - Dry eye [Recovering/Resolving]
